FAERS Safety Report 10197154 (Version 1)
Quarter: 2014Q2

REPORT INFORMATION
  Report Type: Spontaneous
  Country: US (occurrence: None)
  Receive Date: 20140523
  Receipt Date: 20140523
  Transmission Date: 20141212
  Serious: Yes (Life-Threatening, Disabling)
  Sender: FDA-Public Use
  Company Number: None

PATIENT
  Age: 32 Year
  Sex: Female
  Weight: 95.71 kg

DRUGS (1)
  1. ABILIFY [Suspect]
     Indication: DRUG THERAPY
     Dosage: 1 PILL, ONCE DAILY, TAKEN BY MOUTH
     Route: 048
     Dates: start: 20140515, end: 20140517

REACTIONS (10)
  - Haemoptysis [None]
  - Pharyngeal oedema [None]
  - Swollen tongue [None]
  - Speech disorder [None]
  - Dysphagia [None]
  - Rash [None]
  - Diarrhoea [None]
  - Dehydration [None]
  - Tenderness [None]
  - Pharyngeal erythema [None]
